FAERS Safety Report 23304855 (Version 1)
Quarter: 2023Q4

REPORT INFORMATION
  Report Type: Spontaneous
  Country: US (occurrence: US)
  Receive Date: 20231218
  Receipt Date: 20231218
  Transmission Date: 20240109
  Serious: No
  Sender: FDA-Public Use
  Company Number: US-GSK-US2023AMR174211

PATIENT
  Sex: Female

DRUGS (4)
  1. FLOLAN [Suspect]
     Active Substance: EPOPROSTENOL SODIUM
     Indication: Pulmonary arterial hypertension
     Dosage: UNK (35.12 NG/KG/MIN)
     Dates: start: 20060413
  2. GLYCINE\MANNITOL\SODIUM CHLORIDE [Suspect]
     Active Substance: GLYCINE\MANNITOL\SODIUM CHLORIDE
     Indication: Pulmonary arterial hypertension
     Dosage: UNK
  3. OPSUMIT [Suspect]
     Active Substance: MACITENTAN
     Indication: Product used for unknown indication
     Dosage: UNK
  4. SILDENAFIL [Suspect]
     Active Substance: SILDENAFIL
     Indication: Product used for unknown indication
     Dosage: UNK

REACTIONS (2)
  - Headache [Unknown]
  - Sinus congestion [Unknown]
